FAERS Safety Report 19079133 (Version 1)
Quarter: 2021Q1

REPORT INFORMATION
  Report Type: Report from Study
  Country: US (occurrence: US)
  Receive Date: 20210331
  Receipt Date: 20210331
  Transmission Date: 20210420
  Serious: No
  Sender: FDA-Public Use
  Company Number: US-ORION CORPORATION ORION PHARMA-ENT 2020-0066

PATIENT
  Sex: Female

DRUGS (13)
  1. ENTACAPONE (TRADE NAME UNKNOWN) [Suspect]
     Active Substance: ENTACAPONE
     Indication: PRODUCT USED FOR UNKNOWN INDICATION
     Dosage: 2 DOSAGE UNIT (5X/DAY WITH RYTARY, 1X/DAY AT BEDTIME)
     Route: 065
     Dates: start: 202008, end: 2020
  2. NAPROXEN. [Concomitant]
     Active Substance: NAPROXEN
     Route: 065
  3. GOCOVRI [Suspect]
     Active Substance: AMANTADINE
     Indication: DYSKINESIA
     Dosage: STRENGTH: 137 MG?AT BEDTIME
     Route: 048
     Dates: start: 20200317, end: 2020
  4. VITAMIN B12 [Concomitant]
     Active Substance: CYANOCOBALAMIN
     Indication: VITAMIN SUPPLEMENTATION
     Route: 065
     Dates: end: 2020
  5. DULOXETINE. [Concomitant]
     Active Substance: DULOXETINE
     Route: 065
  6. RASAGILINE. [Concomitant]
     Active Substance: RASAGILINE
     Route: 065
  7. FISH OIL [Concomitant]
     Active Substance: FISH OIL
     Route: 065
     Dates: end: 2020
  8. GOCOVRI [Suspect]
     Active Substance: AMANTADINE
     Dosage: AT BEDTIME
     Route: 048
     Dates: start: 2020, end: 2020
  9. RYTARY [Concomitant]
     Active Substance: CARBIDOPA\LEVODOPA
     Route: 065
  10. VITAMIN D3 [Concomitant]
     Active Substance: CHOLECALCIFEROL
     Indication: VITAMIN SUPPLEMENTATION
     Route: 065
  11. ENTACAPONE (TRADE NAME UNKNOWN) [Suspect]
     Active Substance: ENTACAPONE
     Dosage: DOSE DECREASED?1 DOSAGE UNIT (5X/DAY WITH RYTARY, 1X/DAY AT BEDTIME)
     Route: 065
     Dates: start: 2020, end: 20200911
  12. GOCOVRI [Suspect]
     Active Substance: AMANTADINE
     Dosage: AT BEDTIME
     Route: 048
     Dates: start: 2020
  13. MULTIVITAMIN [Concomitant]
     Active Substance: VITAMINS
     Indication: VITAMIN SUPPLEMENTATION
     Route: 065

REACTIONS (17)
  - Intentional dose omission [Unknown]
  - Fall [Recovered/Resolved]
  - Back pain [Recovering/Resolving]
  - Somnolence [Unknown]
  - Intentional product use issue [Unknown]
  - Rash [Recovered/Resolved]
  - Constipation [Recovered/Resolved]
  - Tremor [Not Recovered/Not Resolved]
  - Eye discharge [Unknown]
  - Swelling [Unknown]
  - Head injury [Unknown]
  - Musculoskeletal discomfort [Unknown]
  - Gait disturbance [Not Recovered/Not Resolved]
  - Dyskinesia [Recovered/Resolved]
  - Weight decreased [Not Recovered/Not Resolved]
  - Head discomfort [Unknown]
  - Pain in extremity [Recovering/Resolving]

NARRATIVE: CASE EVENT DATE: 2020
